FAERS Safety Report 10073673 (Version 1)
Quarter: 2014Q2

REPORT INFORMATION
  Report Type: Spontaneous
  Country: US (occurrence: US)
  Receive Date: 20140411
  Receipt Date: 20140411
  Transmission Date: 20141212
  Serious: No
  Sender: FDA-Public Use
  Company Number: US-TEVA-472620USA

PATIENT
  Age: 76 Year
  Sex: Female
  Weight: 96.25 kg

DRUGS (5)
  1. PROAIR HFA [Suspect]
     Indication: DYSPNOEA
     Dates: start: 20140327
  2. INSULIN [Concomitant]
     Indication: DIABETES MELLITUS
  3. METFORMIN [Concomitant]
     Indication: DIABETES MELLITUS
  4. ASPIRIN [Concomitant]
     Indication: CEREBROVASCULAR ACCIDENT PROPHYLAXIS
  5. SYMBICORT [Concomitant]

REACTIONS (1)
  - Epistaxis [Recovered/Resolved]
